FAERS Safety Report 10368672 (Version 4)
Quarter: 2014Q3

REPORT INFORMATION
  Report Type: Spontaneous
  Country: JP (occurrence: JP)
  Receive Date: 20140807
  Receipt Date: 20140929
  Transmission Date: 20150326
  Serious: Yes (Hospitalization)
  Sender: FDA-Public Use
  Company Number: JP-ASTELLAS-2014JP016514

PATIENT
  Age: 72 Year
  Sex: Male
  Weight: 47 kg

DRUGS (16)
  1. FLUITRAN [Concomitant]
     Active Substance: TRICHLORMETHIAZIDE
     Indication: OEDEMA DUE TO RENAL DISEASE
     Route: 048
     Dates: start: 20130116, end: 20140728
  2. WARFARIN [Concomitant]
     Active Substance: WARFARIN
     Indication: DEEP VEIN THROMBOSIS
     Route: 048
     Dates: start: 20140512, end: 20140728
  3. PARIET [Concomitant]
     Active Substance: RABEPRAZOLE SODIUM
     Indication: GASTROOESOPHAGEAL REFLUX DISEASE
     Route: 048
     Dates: start: 20130614, end: 20140728
  4. XTANDI [Suspect]
     Active Substance: ENZALUTAMIDE
     Indication: PROSTATE CANCER
     Route: 048
     Dates: start: 20140708, end: 20140728
  5. HANGESHASHINTO [Concomitant]
     Active Substance: UNSPECIFIED INGREDIENT
     Indication: STOMATITIS
     Route: 048
     Dates: start: 20130519, end: 20140728
  6. MIRCERA [Concomitant]
     Active Substance: PEGZEREPOETIN ALFA
     Indication: NEPHROGENIC ANAEMIA
     Dosage: 150 MCG, MONTHLY
     Route: 058
     Dates: start: 20140528
  7. LEUPLIN [Concomitant]
     Active Substance: LEUPROLIDE ACETATE
     Indication: PROSTATE CANCER
     Dosage: 11.25 MG, EVERY 3 MONTHS
     Route: 058
     Dates: start: 20100518
  8. FERROMIA [Concomitant]
     Active Substance: FERROUS CITRATE
     Indication: IRON DEFICIENCY ANAEMIA
     Route: 048
     Dates: start: 20130319, end: 20140728
  9. LORELCO [Concomitant]
     Active Substance: PROBUCOL
     Indication: HYPERLIPIDAEMIA
     Route: 048
     Dates: start: 20130614, end: 20140728
  10. ALFAROL [Concomitant]
     Active Substance: ALFACALCIDOL
     Indication: HYPOCALCAEMIA
     Dosage: 0.5 MCG, ONCE DAILY
     Route: 048
     Dates: start: 20121016, end: 20140728
  11. FEBURIC [Concomitant]
     Active Substance: FEBUXOSTAT
     Indication: HYPERURICAEMIA
     Route: 048
     Dates: start: 20130107, end: 20140728
  12. SENNOSIDE                          /00571901/ [Concomitant]
     Active Substance: SENNOSIDE A\SENNOSIDE B\SENNOSIDES
     Indication: CONSTIPATION
     Route: 048
     Dates: start: 20111207, end: 20140728
  13. OXYCONTIN [Concomitant]
     Active Substance: OXYCODONE HYDROCHLORIDE
     Indication: CANCER PAIN
     Route: 048
     Dates: start: 20130530, end: 20140728
  14. CELECOX [Concomitant]
     Active Substance: CELECOXIB
     Indication: BACK PAIN
     Route: 048
     Dates: start: 20120117, end: 20140728
  15. ASPARA-CA [Concomitant]
     Active Substance: CALCIUM ASPARTATE
     Indication: HYPOCALCAEMIA
     Route: 048
     Dates: start: 20121016, end: 20140728
  16. OXINORM                            /00045603/ [Concomitant]
     Indication: CANCER PAIN
     Route: 048
     Dates: start: 20130521, end: 20140728

REACTIONS (1)
  - Haemorrhagic cerebral infarction [Not Recovered/Not Resolved]

NARRATIVE: CASE EVENT DATE: 20140727
